FAERS Safety Report 7827490-6 (Version None)
Quarter: 2011Q4

REPORT INFORMATION
  Report Type: 
  Country: None (occurrence: None)
  Receive Date: 20111020
  Receipt Date: 20111011
  Transmission Date: 20120403
  Serious: Yes (Death)
  Sender: FDA-Public Use
  Company Number: DE-ROCHE-1005462

PATIENT
  Age: 67 Year
  Sex: Male

DRUGS (13)
  1. PIPERACILLIN [Concomitant]
     Dosage: 3 X 4/1 G
     Dates: start: 20110730, end: 20110815
  2. VANCOMYCIN HCL [Concomitant]
     Dosage: 2 X 1 G
     Dates: start: 20110730, end: 20110819
  3. CILEX (AUSTRALIA) [Concomitant]
  4. NEUPOGEN [Concomitant]
     Dates: start: 20110807
  5. FLUDARABINE PHOSPHATE [Suspect]
     Indication: B-CELL LYMPHOMA
     Route: 042
     Dates: start: 20110303, end: 20110722
  6. MEROPENEM [Concomitant]
     Dosage: 3 X 1 G
     Dates: start: 20110815, end: 20110819
  7. MABTHERA [Suspect]
     Indication: B-CELL LYMPHOMA
     Route: 042
     Dates: start: 20100302, end: 20100719
  8. ATORVASTATIN [Concomitant]
  9. TREOSULFAN [Concomitant]
     Dosage: 3 X 12000 MG
     Dates: start: 20110726, end: 20110827
  10. CANDESARTAN CILEXETIL [Concomitant]
  11. ANTI-THYMOCYTE GLOBULIN NOS [Concomitant]
     Dates: start: 20110729, end: 20110801
  12. CYCLOPHOSPHAMIDE [Suspect]
     Indication: B-CELL LYMPHOMA
     Route: 042
     Dates: start: 20110303, end: 20110722
  13. MUD [Concomitant]
     Dates: end: 20110802

REACTIONS (5)
  - MYELODYSPLASTIC SYNDROME [None]
  - REFRACTORY ANAEMIA [None]
  - THROMBOCYTOPENIA [None]
  - ACUTE MYELOID LEUKAEMIA [None]
  - CEREBRAL HAEMORRHAGE [None]
